FAERS Safety Report 7206214-X (Version None)
Quarter: 2011Q1

REPORT INFORMATION
  Report Type: 
  Country: None (occurrence: None)
  Receive Date: 20110103
  Receipt Date: 20101220
  Transmission Date: 20110831
  Serious: Yes (Hospitalization, Other)
  Sender: FDA-Public Use
  Company Number: FR-ELI_LILLY_AND_COMPANY-FR201010005512

PATIENT
  Age: 55 Year
  Sex: Male

DRUGS (11)
  1. ZOPHREN [Concomitant]
     Dosage: 8 MG, 2/D
  2. LEXOMIL [Concomitant]
     Dosage: 0.25 D/F, 3/D
     Dates: start: 20100801
  3. FENTANYL CITRATE [Concomitant]
     Dosage: 100 UG, UNK
     Dates: start: 20100801
  4. DURAGESIC-100 [Concomitant]
     Dosage: 5 UG, 2/D
     Dates: start: 20100801
  5. LYTOS [Concomitant]
     Dates: start: 20100801, end: 20100901
  6. ALIMTA [Suspect]
     Indication: LUNG ADENOCARCINOMA
     Dosage: UNK, UNKNOWN
     Route: 065
     Dates: start: 20100825
  7. CISPLATIN [Concomitant]
     Indication: LUNG ADENOCARCINOMA
     Route: 042
     Dates: start: 20100825
  8. BIPERIDYS [Concomitant]
     Dosage: 20 MG, 3/D
     Route: 048
     Dates: start: 20100901
  9. FOLIC ACID [Concomitant]
     Dosage: 5 MG, 2/D
     Dates: start: 20100901
  10. PRIMPERAN TAB [Concomitant]
     Dosage: UNK, AS NEEDED
     Dates: start: 20100901
  11. FRAXODI [Concomitant]
     Dosage: 1 D/F, DAILY (1/D)
     Dates: start: 20100801

REACTIONS (5)
  - CHONDROCALCINOSIS [None]
  - HYPERTHERMIA [None]
  - GAIT DISTURBANCE [None]
  - ARTICULAR CALCIFICATION [None]
  - INFLAMMATORY PAIN [None]
